FAERS Safety Report 15090657 (Version 2)
Quarter: 2018Q4

REPORT INFORMATION
  Report Type: Spontaneous
  Country: JP (occurrence: JP)
  Receive Date: 20180629
  Receipt Date: 20181212
  Transmission Date: 20190204
  Serious: Yes (Death)
  Sender: FDA-Public Use
  Company Number: JP-PFIZER INC-2018260723

PATIENT
  Age: 11 Month
  Sex: Male

DRUGS (4)
  1. FUTHAN [Suspect]
     Active Substance: NAFAMOSTAT MESYLATE
     Dosage: UNK
  2. RECOMODULIN [Suspect]
     Active Substance: THROMBOMODULIN ALFA
     Dosage: UNK
  3. ANACT C [Suspect]
     Active Substance: PROTEIN C
     Indication: DEEP VEIN THROMBOSIS
     Dosage: UNK
  4. FRAGMIN [Suspect]
     Active Substance: DALTEPARIN SODIUM
     Dosage: UNK

REACTIONS (1)
  - Pulmonary haemorrhage [Fatal]
